FAERS Safety Report 23827619 (Version 1)
Quarter: 2024Q2

REPORT INFORMATION
  Report Type: Spontaneous
  Country: US (occurrence: None)
  Receive Date: 20240506
  Receipt Date: 20240506
  Transmission Date: 20240716
  Serious: No
  Sender: FDA-Public Use
  Company Number: None

PATIENT
  Age: 62 Year
  Sex: Female

DRUGS (7)
  1. PROCHLORPERAZINE [Suspect]
     Active Substance: PROCHLORPERAZINE
     Indication: Nausea
     Dosage: OTHER FREQUENCY : ONCE;?
     Route: 040
     Dates: start: 20230323, end: 20230323
  2. carvedilol (prior to admission medication) [Concomitant]
  3. enalapril (prior to admission medication) [Concomitant]
  4. FUROSEMIDE [Concomitant]
     Active Substance: FUROSEMIDE
     Dates: start: 20230322, end: 20230402
  5. KETOROLAC [Concomitant]
     Active Substance: KETOROLAC TROMETHAMINE
     Dates: start: 20230321, end: 20230325
  6. LORAZEPAM [Concomitant]
     Active Substance: LORAZEPAM
     Dates: start: 20230321, end: 20230402
  7. PANTOPRAZOLE [Concomitant]
     Active Substance: PANTOPRAZOLE
     Dates: start: 20230321, end: 20230402

REACTIONS (4)
  - Swollen tongue [None]
  - Lip swelling [None]
  - Dysarthria [None]
  - Angioedema [None]

NARRATIVE: CASE EVENT DATE: 20240321
